FAERS Safety Report 8000114-3 (Version None)
Quarter: 2011Q4

REPORT INFORMATION
  Report Type: 
  Country: None (occurrence: None)
  Receive Date: 20111222
  Receipt Date: 20111209
  Transmission Date: 20120403
  Serious: Yes (Hospitalization)
  Sender: FDA-Public Use
  Company Number: US-ELI_LILLY_AND_COMPANY-US201112001445

PATIENT
  Sex: Female

DRUGS (24)
  1. TEKTURNA [Concomitant]
  2. RESTASIS [Concomitant]
  3. CITRUCEL [Concomitant]
  4. STOOL SOFTENER [Concomitant]
  5. LEVOTHYROXINE SODIUM [Concomitant]
  6. FORTEO [Suspect]
     Indication: OSTEOPOROSIS
     Dosage: 20 UG, QD
     Route: 065
     Dates: start: 20111125, end: 20111202
  7. MIRALAX [Concomitant]
  8. LEVOTHYROXINE SODIUM [Concomitant]
  9. VICODIN [Concomitant]
  10. MULTI-VITAMIN [Concomitant]
  11. FISH OIL [Concomitant]
  12. CLONIDINE [Concomitant]
  13. LIDOCAINE [Concomitant]
     Dosage: UNK
  14. FLEXOR                             /00428402/ [Concomitant]
  15. LISINOPRIL [Concomitant]
  16. ALPRAZOLAM [Concomitant]
  17. LEVOTHYROXINE SODIUM [Concomitant]
  18. LIDODERM [Concomitant]
  19. NEURONTIN [Concomitant]
  20. CALCIUM [Concomitant]
  21. FLECTOR                            /00372302/ [Concomitant]
  22. FORTEO [Suspect]
     Dosage: 20 UG, QD
     Dates: start: 20111208, end: 20111209
  23. CYMBALTA [Suspect]
     Indication: PAIN
     Dosage: 30 MG, UNK
  24. LIPODERM [Concomitant]

REACTIONS (25)
  - BACK PAIN [None]
  - BACK DISORDER [None]
  - NECK PAIN [None]
  - INTENTIONAL DRUG MISUSE [None]
  - LOCAL SWELLING [None]
  - POLYARTHRITIS [None]
  - ARTHROPATHY [None]
  - BLOOD PRESSURE FLUCTUATION [None]
  - TREMOR [None]
  - HYPOAESTHESIA [None]
  - SPONDYLITIS [None]
  - MORBID THOUGHTS [None]
  - BODY HEIGHT DECREASED [None]
  - ARTHRALGIA [None]
  - CONSTIPATION [None]
  - PAIN [None]
  - INJECTION SITE HAEMORRHAGE [None]
  - FLANK PAIN [None]
  - PAIN IN EXTREMITY [None]
  - MOBILITY DECREASED [None]
  - INCORRECT STORAGE OF DRUG [None]
  - DIZZINESS [None]
  - RIB DEFORMITY [None]
  - MUSCULOSKELETAL CHEST PAIN [None]
  - SKIN DISCOLOURATION [None]
